FAERS Safety Report 7493656-0 (Version None)
Quarter: 2011Q2

REPORT INFORMATION
  Report Type: 
  Country: None (occurrence: None)
  Receive Date: 20110520
  Receipt Date: 20110428
  Transmission Date: 20111010
  Serious: Yes (Hospitalization, Other)
  Sender: FDA-Public Use
  Company Number: US-BAYER-200940748NA

PATIENT
  Age: 48 Year
  Sex: Female
  Weight: 79 kg

DRUGS (1)
  1. YAZ [Suspect]
     Indication: MENSTRUATION IRREGULAR
     Dosage: UNK
     Dates: start: 20070401, end: 20070901

REACTIONS (3)
  - PHYSICAL DISABILITY [None]
  - GAIT DISTURBANCE [None]
  - EMBOLIC STROKE [None]
